FAERS Safety Report 11632747 (Version 1)
Quarter: 2015Q4

REPORT INFORMATION
  Report Type: Spontaneous
  Country: US (occurrence: None)
  Receive Date: 20151014
  Receipt Date: 20151014
  Transmission Date: 20160304
  Serious: Yes (Other)
  Sender: FDA-Public Use
  Company Number: None

PATIENT
  Age: 49 Year
  Sex: Female
  Weight: 68.04 kg

DRUGS (2)
  1. LIPITOR [Concomitant]
     Active Substance: ATORVASTATIN CALCIUM
  2. SERTRALINE HCL 100 MG LUPINE PHARMACEUTICA L [Suspect]
     Active Substance: SERTRALINE HYDROCHLORIDE
     Indication: ANXIETY
     Route: 048
     Dates: start: 20151010, end: 20151010

REACTIONS (7)
  - Oral discomfort [None]
  - Oral pain [None]
  - Glossodynia [None]
  - Vomiting [None]
  - Throat irritation [None]
  - Oesophageal pain [None]
  - Wrong technique in product usage process [None]

NARRATIVE: CASE EVENT DATE: 20151010
